FAERS Safety Report 10047092 (Version 1)
Quarter: 2014Q1

REPORT INFORMATION
  Report Type: Spontaneous
  Country: US (occurrence: US)
  Receive Date: 20140331
  Receipt Date: 20140331
  Transmission Date: 20141002
  Serious: No
  Sender: FDA-Public Use
  Company Number: US-MYLANLABS-2013S1006933

PATIENT
  Age: 36 Year
  Sex: Female

DRUGS (4)
  1. FENTANYL TRANSDERMAL SYSTEM [Suspect]
     Dates: start: 20130324, end: 20130324
  2. SYNTHROID [Concomitant]
  3. CALCIUM [Concomitant]
  4. VITAMIN D [Concomitant]

REACTIONS (6)
  - Mania [Recovered/Resolved]
  - Aphasia [Recovered/Resolved]
  - Constipation [Not Recovered/Not Resolved]
  - Mental impairment [Recovered/Resolved]
  - Vomiting [Recovered/Resolved]
  - Expired drug administered [Recovered/Resolved]
